FAERS Safety Report 9972459 (Version 1)
Quarter: 2014Q1

REPORT INFORMATION
  Report Type: Report from Study
  Country: US (occurrence: US)
  Receive Date: 20140306
  Receipt Date: 20140306
  Transmission Date: 20141002
  Serious: No
  Sender: FDA-Public Use
  Company Number: US-ABBVIE-13P-163-1154981-00

PATIENT
  Age: 60 Year
  Sex: Female
  Weight: 81.27 kg

DRUGS (4)
  1. HUMIRA [Suspect]
     Indication: RHEUMATOID ARTHRITIS
     Dates: start: 2012
  2. HUMIRA [Suspect]
     Dates: start: 201304
  3. METFORMIN [Concomitant]
     Indication: DIABETES MELLITUS
  4. OSTEO BI-FLEX [Concomitant]
     Indication: VITAMIN SUPPLEMENTATION

REACTIONS (5)
  - Fatigue [Not Recovered/Not Resolved]
  - Nasal congestion [Not Recovered/Not Resolved]
  - General symptom [Not Recovered/Not Resolved]
  - Oropharyngeal pain [Recovered/Resolved]
  - Rash macular [Not Recovered/Not Resolved]
